FAERS Safety Report 19520423 (Version 2)
Quarter: 2021Q3

REPORT INFORMATION
  Report Type: Spontaneous
  Country: US (occurrence: US)
  Receive Date: 20210712
  Receipt Date: 20210722
  Transmission Date: 20211014
  Serious: Yes (Hospitalization)
  Sender: FDA-Public Use
  Company Number: US-KARYOPHARM-2021KPT000859

PATIENT

DRUGS (18)
  1. DEXAMETHASONE. [Concomitant]
     Active Substance: DEXAMETHASONE
  2. GABAPENTIN. [Concomitant]
     Active Substance: GABAPENTIN
  3. ACYCLOVIR [ACICLOVIR] [Concomitant]
     Active Substance: ACYCLOVIR
  4. LEXAPRO [Concomitant]
     Active Substance: ESCITALOPRAM OXALATE
  5. FENTANYL. [Concomitant]
     Active Substance: FENTANYL
  6. HYDROXYZINE [Concomitant]
     Active Substance: HYDROXYZINE HYDROCHLORIDE
  7. NYSTATIN. [Concomitant]
     Active Substance: NYSTATIN
  8. OXYCODONE [Concomitant]
     Active Substance: OXYCODONE
  9. ROSUVASTATIN. [Concomitant]
     Active Substance: ROSUVASTATIN
  10. LEVEMIR [Concomitant]
     Active Substance: INSULIN DETEMIR
  11. ENTECAVIR. [Concomitant]
     Active Substance: ENTECAVIR
  12. OMEPRAZOLE. [Concomitant]
     Active Substance: OMEPRAZOLE
  13. VALSARTAN. [Concomitant]
     Active Substance: VALSARTAN
  14. ONDANSETRON [Concomitant]
     Active Substance: ONDANSETRON
  15. LEVOTHYROXINE. [Concomitant]
     Active Substance: LEVOTHYROXINE
  16. IPRATROPIUM BROMIDE AND ALBUTEROL SULFATE [Concomitant]
     Active Substance: ALBUTEROL SULFATE\IPRATROPIUM BROMIDE
  17. LORAZEPAM. [Concomitant]
     Active Substance: LORAZEPAM
  18. XPOVIO [Suspect]
     Active Substance: SELINEXOR
     Indication: DIFFUSE LARGE B-CELL LYMPHOMA
     Dosage: 60 MG, 2X/WEEK
     Route: 048
     Dates: start: 20210618, end: 202107

REACTIONS (7)
  - Diffuse large B-cell lymphoma [Unknown]
  - Rash [Unknown]
  - Fatigue [Unknown]
  - Dyspnoea [Unknown]
  - Asthenia [Unknown]
  - Oropharyngeal pain [Not Recovered/Not Resolved]
  - Pain [Unknown]

NARRATIVE: CASE EVENT DATE: 202106
